FAERS Safety Report 17548671 (Version 1)
Quarter: 2020Q1

REPORT INFORMATION
  Report Type: Spontaneous
  Country: DE (occurrence: DE)
  Receive Date: 20200317
  Receipt Date: 20200317
  Transmission Date: 20200409
  Serious: Yes (Other)
  Sender: FDA-Public Use
  Company Number: NVSC2020DE072564

PATIENT
  Age: 64 Year
  Sex: Male

DRUGS (25)
  1. GABAPENTIN. [Suspect]
     Active Substance: GABAPENTIN
     Indication: AUTOMATISM EPILEPTIC
  2. ZONISAMIDE. [Suspect]
     Active Substance: ZONISAMIDE
     Indication: GENERALISED TONIC-CLONIC SEIZURE
  3. GABAPENTIN. [Suspect]
     Active Substance: GABAPENTIN
     Indication: GENERALISED TONIC-CLONIC SEIZURE
     Dosage: UNK
     Route: 065
  4. LACOSAMIDE. [Suspect]
     Active Substance: LACOSAMIDE
     Indication: GENERALISED TONIC-CLONIC SEIZURE
  5. PRIMIDONE. [Suspect]
     Active Substance: PRIMIDONE
     Indication: AUTOMATISM EPILEPTIC
  6. LACOSAMIDE. [Suspect]
     Active Substance: LACOSAMIDE
     Indication: AUTOMATISM EPILEPTIC
  7. ZONISAMIDE. [Suspect]
     Active Substance: ZONISAMIDE
     Indication: AUTOMATISM EPILEPTIC
  8. VALPROATE [Suspect]
     Active Substance: VALPROIC ACID
     Indication: AUTOMATISM EPILEPTIC
     Dosage: UNK
     Route: 065
  9. VALPROATE [Suspect]
     Active Substance: VALPROIC ACID
     Indication: AURA
  10. LAMOTRIGINE. [Suspect]
     Active Substance: LAMOTRIGINE
     Indication: GENERALISED TONIC-CLONIC SEIZURE
  11. GABAPENTIN. [Suspect]
     Active Substance: GABAPENTIN
     Indication: AURA
  12. OXCARBAZEPINE. [Suspect]
     Active Substance: OXCARBAZEPINE
     Indication: AUTOMATISM EPILEPTIC
  13. LEVETIRACETAM. [Suspect]
     Active Substance: LEVETIRACETAM
     Indication: AUTOMATISM EPILEPTIC
  14. OLANZAPINE. [Suspect]
     Active Substance: OLANZAPINE
     Indication: PRODUCT USED FOR UNKNOWN INDICATION
     Dosage: UNK
     Route: 065
  15. LAMOTRIGINE. [Suspect]
     Active Substance: LAMOTRIGINE
     Indication: AUTOMATISM EPILEPTIC
     Dosage: 900 MG, QD
     Route: 065
  16. LAMOTRIGINE. [Suspect]
     Active Substance: LAMOTRIGINE
     Indication: AURA
  17. OXCARBAZEPINE. [Suspect]
     Active Substance: OXCARBAZEPINE
     Indication: AURA
     Dosage: UNK
     Route: 065
  18. LACOSAMIDE. [Suspect]
     Active Substance: LACOSAMIDE
     Indication: AURA
     Dosage: UNK
     Route: 065
  19. PRIMIDONE. [Suspect]
     Active Substance: PRIMIDONE
     Indication: AURA
     Dosage: UNK
     Route: 065
  20. OXCARBAZEPINE. [Suspect]
     Active Substance: OXCARBAZEPINE
     Indication: GENERALISED TONIC-CLONIC SEIZURE
  21. LEVETIRACETAM. [Suspect]
     Active Substance: LEVETIRACETAM
     Indication: GENERALISED TONIC-CLONIC SEIZURE
  22. ZONISAMIDE. [Suspect]
     Active Substance: ZONISAMIDE
     Indication: AURA
     Dosage: UNK
     Route: 065
  23. PRIMIDONE. [Suspect]
     Active Substance: PRIMIDONE
     Indication: GENERALISED TONIC-CLONIC SEIZURE
  24. LEVETIRACETAM. [Suspect]
     Active Substance: LEVETIRACETAM
     Indication: AURA
     Dosage: 3000 MG, QD
     Route: 065
  25. VALPROATE [Suspect]
     Active Substance: VALPROIC ACID
     Indication: GENERALISED TONIC-CLONIC SEIZURE

REACTIONS (5)
  - Delusion [Recovered/Resolved]
  - Depressive symptom [Recovered/Resolved]
  - Therapeutic product effect incomplete [Recovered/Resolved]
  - Psychotic symptom [Recovered/Resolved]
  - Drug ineffective [Unknown]
